FAERS Safety Report 9223914 (Version 1)
Quarter: 2013Q2

REPORT INFORMATION
  Report Type: Spontaneous
  Country: US (occurrence: US)
  Receive Date: 20130411
  Receipt Date: 20130411
  Transmission Date: 20140414
  Serious: No
  Sender: FDA-Public Use
  Company Number: US-BIOGENIDEC-2013BI030527

PATIENT
  Age: 42 Year
  Sex: Male

DRUGS (7)
  1. AVONEX [Suspect]
     Indication: MULTIPLE SCLEROSIS
     Route: 030
     Dates: start: 20130308
  2. IBUPROFEN [Concomitant]
     Indication: PAIN
  3. PERCOCET [Concomitant]
     Indication: PAIN
  4. LIDOCAINE PATCHES [Concomitant]
     Indication: INTERVERTEBRAL DISC PROTRUSION
  5. VOLTAREN GEL [Concomitant]
     Indication: PAIN
  6. GABAPENTIN [Concomitant]
     Indication: PAIN
  7. PROZAC [Concomitant]
     Indication: DEPRESSION

REACTIONS (8)
  - Intervertebral disc protrusion [Not Recovered/Not Resolved]
  - Cognitive disorder [Unknown]
  - Claustrophobia [Unknown]
  - Back pain [Recovered/Resolved]
  - Arthralgia [Recovered/Resolved]
  - Pyrexia [Recovered/Resolved]
  - Influenza like illness [Recovered/Resolved]
  - Anxiety [Not Recovered/Not Resolved]
